FAERS Safety Report 7806122-7 (Version None)
Quarter: 2011Q4

REPORT INFORMATION
  Report Type: 
  Country: None (occurrence: None)
  Receive Date: 20111011
  Receipt Date: 20111006
  Transmission Date: 20120403
  Serious: No
  Sender: FDA-Public Use
  Company Number: US-PFIZER INC-2011239425

PATIENT
  Sex: Female

DRUGS (1)
  1. TRAZODONE HCL [Suspect]
     Indication: DEPRESSION
     Dosage: 75 MG, 1X/DAY
     Route: 048
     Dates: start: 20110919, end: 20110926

REACTIONS (4)
  - ABNORMAL DREAMS [None]
  - LETHARGY [None]
  - TENDERNESS [None]
  - BACK PAIN [None]
